FAERS Safety Report 8078912-X (Version None)
Quarter: 2012Q1

REPORT INFORMATION
  Report Type: 
  Country: None (occurrence: None)
  Receive Date: 20120128
  Receipt Date: 20110421
  Transmission Date: 20120608
  Serious: No
  Sender: FDA-Public Use
  Company Number: US-ABBOTT-11P-163-0721465-00

PATIENT
  Sex: Male
  Weight: 74.91 kg

DRUGS (5)
  1. HUMIRA [Suspect]
     Indication: ANKYLOSING SPONDYLITIS
     Dates: start: 20100901, end: 20101101
  2. SHINGLES VACCINE [Concomitant]
     Indication: PROPHYLAXIS
     Dates: start: 20110101, end: 20110101
  3. HUMIRA [Suspect]
     Dates: start: 20110408
  4. PREDNISONE TAB [Concomitant]
     Indication: ANKYLOSING SPONDYLITIS
  5. METHOTREXATE [Concomitant]
     Indication: ANKYLOSING SPONDYLITIS

REACTIONS (2)
  - HERPES ZOSTER [None]
  - PAIN [None]
